FAERS Safety Report 14847033 (Version 1)
Quarter: 2018Q2

REPORT INFORMATION
  Report Type: Report from Study
  Country: US (occurrence: US)
  Receive Date: 20180504
  Receipt Date: 20180504
  Transmission Date: 20180711
  Serious: Yes (Hospitalization, Other)
  Sender: FDA-Public Use
  Company Number: US-PFIZER INC-2018179956

PATIENT
  Age: 59 Year
  Sex: Female
  Weight: 63.49 kg

DRUGS (11)
  1. VALPAKINE [Concomitant]
     Active Substance: VALPROATE SODIUM
     Dosage: UNK
  2. VALIUM [Suspect]
     Active Substance: DIAZEPAM
     Dosage: UNK
  3. MELATONIN [Concomitant]
     Active Substance: MELATONIN
     Dosage: UNK
  4. HUMIRA [Suspect]
     Active Substance: ADALIMUMAB
     Indication: RHEUMATOID ARTHRITIS
     Dosage: 40 MG, UNK (40 MG, 1 IN 2 WK)
     Route: 058
     Dates: start: 2010, end: 201709
  5. HUMIRA [Suspect]
     Active Substance: ADALIMUMAB
     Dosage: 40 MG, UNK (40 MG, 1 IN 2 WK)
     Route: 058
     Dates: start: 201709, end: 201711
  6. BUPROPION. [Concomitant]
     Active Substance: BUPROPION
     Dosage: UNK
  7. HYDROMORPHONE [Concomitant]
     Active Substance: HYDROMORPHONE
     Dosage: UNK
  8. CELEBREX [Concomitant]
     Active Substance: CELECOXIB
     Dosage: UNK
  9. XANAX [Suspect]
     Active Substance: ALPRAZOLAM
     Dosage: UNK
  10. PROZAC [Concomitant]
     Active Substance: FLUOXETINE HYDROCHLORIDE
     Dosage: UNK
  11. PROCARDIA [Concomitant]
     Active Substance: NIFEDIPINE
     Dosage: UNK

REACTIONS (19)
  - Procedural complication [Recovered/Resolved]
  - Gait disturbance [Recovered/Resolved]
  - Pain [Unknown]
  - Thrombosis [Unknown]
  - Meningitis bacterial [Recovered/Resolved]
  - Nausea [Unknown]
  - Confusional state [Recovered/Resolved]
  - Fatigue [Recovered/Resolved]
  - Blood potassium decreased [Recovered/Resolved]
  - Bacterial infection [Recovered/Resolved]
  - Fungal infection [Recovered/Resolved]
  - Asthenia [Recovered/Resolved]
  - Arthritis [Recovered/Resolved]
  - Dysarthria [Recovered/Resolved]
  - Uterine cyst [Recovered/Resolved]
  - Hypertension [Not Recovered/Not Resolved]
  - Device related infection [Unknown]
  - Vaginal haemorrhage [Recovered/Resolved]
  - Condition aggravated [Recovered/Resolved]

NARRATIVE: CASE EVENT DATE: 2011
